FAERS Safety Report 8588283-8 (Version None)
Quarter: 2012Q3

REPORT INFORMATION
  Report Type: 
  Country: None (occurrence: None)
  Receive Date: 20120813
  Receipt Date: 20120801
  Transmission Date: 20120928
  Serious: Yes (Hospitalization, Other)
  Sender: FDA-Public Use
  Company Number: US-ELI_LILLY_AND_COMPANY-US201208000770

PATIENT
  Age: 57 Year
  Sex: Male

DRUGS (25)
  1. CYMBALTA [Suspect]
     Indication: ANGER
     Dosage: 30 MG, QD
     Dates: start: 20040101
  2. VICODIN ES [Concomitant]
  3. PREVACID [Concomitant]
  4. CARVEDILOL [Concomitant]
  5. FLAXSEED OIL [Concomitant]
  6. GARLIC [Concomitant]
  7. XANAX [Concomitant]
  8. LOVAZA [Concomitant]
  9. SPIRONOLACTONE [Concomitant]
  10. ASPIRIN [Concomitant]
  11. PROZAC [Suspect]
     Indication: ANGER
     Dosage: UNK
     Dates: start: 19950201
  12. SOMA [Concomitant]
  13. FUROSEMIDE [Concomitant]
  14. CYMBALTA [Suspect]
     Dosage: 60 MG, QD
  15. CYMBALTA [Suspect]
     Dosage: 30 MG, QD
     Dates: start: 20120101
  16. CYMBALTA [Suspect]
     Dosage: 30 MG, QOD
     Dates: start: 20120101
  17. FLOVENT [Concomitant]
  18. IPRATROPIUM BROMIDE [Concomitant]
  19. PLAVIX [Concomitant]
  20. CRESTOR [Concomitant]
  21. MULTI-VITAMIN [Concomitant]
  22. PROZAC [Concomitant]
  23. ALBUTEROL SULFATE [Concomitant]
  24. LISINOPRIL [Concomitant]
  25. TESTOSTERONE [Concomitant]

REACTIONS (14)
  - ERYTHEMA [None]
  - ANGER [None]
  - ABNORMAL BEHAVIOUR [None]
  - INTENTIONAL DRUG MISUSE [None]
  - WITHDRAWAL SYNDROME [None]
  - TINNITUS [None]
  - DIZZINESS [None]
  - CHRONIC OBSTRUCTIVE PULMONARY DISEASE [None]
  - DYSPNOEA [None]
  - OFF LABEL USE [None]
  - POLYCYTHAEMIA [None]
  - MYOCARDIAL INFARCTION [None]
  - HYPERHIDROSIS [None]
  - OCULAR HYPERAEMIA [None]
